FAERS Safety Report 24906441 (Version 1)
Quarter: 2025Q1

REPORT INFORMATION
  Report Type: Spontaneous
  Country: PL (occurrence: PL)
  Receive Date: 20250130
  Receipt Date: 20250130
  Transmission Date: 20250409
  Serious: Yes (Life-Threatening, Hospitalization, Other)
  Sender: BRISTOL-MYERS SQUIBB COMPANY
  Company Number: PL-BRISTOL-MYERS SQUIBB COMPANY-2025-010856

PATIENT
  Age: 3 Year
  Sex: Male
  Weight: 13.6 kg

DRUGS (2)
  1. REPOTRECTINIB [Suspect]
     Active Substance: REPOTRECTINIB
     Indication: Congenital fibrosarcoma
     Dosage: 1ST CYCLE
     Route: 048
     Dates: start: 20241202, end: 20250121
  2. REPOTRECTINIB [Suspect]
     Active Substance: REPOTRECTINIB
     Dates: start: 20241231

REACTIONS (3)
  - Femur fracture [Recovering/Resolving]
  - Osteomyelitis [Recovering/Resolving]
  - Anaemia [Recovering/Resolving]

NARRATIVE: CASE EVENT DATE: 20250119
